FAERS Safety Report 18693458 (Version 2)
Quarter: 2021Q1

REPORT INFORMATION
  Report Type: Report from Study
  Country: US (occurrence: US)
  Receive Date: 20210104
  Receipt Date: 20210205
  Transmission Date: 20210419
  Serious: No
  Sender: FDA-Public Use
  Company Number: US-ACADIA PHARMACEUTICALS INC.-ACA-2020-PIM-003967

PATIENT
  Sex: Female
  Weight: 56 kg

DRUGS (4)
  1. NUPLAZID [Suspect]
     Active Substance: PIMAVANSERIN TARTRATE
     Indication: PARKINSON^S DISEASE PSYCHOSIS
     Dosage: 34 MILLIGRAM, QD
     Route: 048
     Dates: start: 20201128
  2. NUPLAZID [Suspect]
     Active Substance: PIMAVANSERIN TARTRATE
     Indication: DELUSION
     Dosage: 34 MILLIGRAM, EVERY OTHER DAY
     Route: 048
     Dates: start: 2020
  3. TYMLOS [Concomitant]
     Active Substance: ABALOPARATIDE
  4. NUPLAZID [Suspect]
     Active Substance: PIMAVANSERIN TARTRATE
     Indication: HALLUCINATION
     Dosage: 34 MILLIGRAM, QD
     Route: 048
     Dates: start: 20201203

REACTIONS (8)
  - Abnormal behaviour [Unknown]
  - Prescribed underdose [Unknown]
  - Headache [Unknown]
  - Palpitations [Unknown]
  - Disorientation [Unknown]
  - Somnolence [Unknown]
  - Somnolence [Unknown]
  - Abnormal dreams [Unknown]

NARRATIVE: CASE EVENT DATE: 2020
